FAERS Safety Report 9070039 (Version 1)
Quarter: 2013Q1

REPORT INFORMATION
  Report Type: Report from Study
  Country: US (occurrence: US)
  Receive Date: 20130129
  Receipt Date: 20130129
  Transmission Date: 20140127
  Serious: No
  Sender: FDA-Public Use
  Company Number: US-ABBOTT-12P-163-0924913-00

PATIENT
  Age: 36 Year
  Sex: Female

DRUGS (4)
  1. HUMIRA 40 MG/ 0.8 ML PRE-FILLED SYRINGE [Suspect]
     Indication: RHEUMATOID ARTHRITIS
     Dates: start: 201110
  2. PROVIGIL [Concomitant]
     Indication: NARCOLEPSY
  3. LOPRESSOR [Concomitant]
     Indication: SUPRAVENTRICULAR TACHYCARDIA
  4. SULFASALAZINE [Concomitant]
     Indication: RHEUMATOID ARTHRITIS

REACTIONS (6)
  - Fatigue [Unknown]
  - Nausea [Not Recovered/Not Resolved]
  - Upper respiratory tract infection [Unknown]
  - Blister [Unknown]
  - Parvovirus infection [Unknown]
  - Fungal infection [Unknown]
